FAERS Safety Report 7480275-5 (Version None)
Quarter: 2011Q2

REPORT INFORMATION
  Report Type: 
  Country: None (occurrence: None)
  Receive Date: 20110516
  Receipt Date: 20110509
  Transmission Date: 20111010
  Serious: No
  Sender: FDA-Public Use
  Company Number: US-BIOGENIDEC-2011BI017626

PATIENT
  Age: 38 Year
  Sex: Female

DRUGS (3)
  1. TYSABRI [Suspect]
     Indication: MULTIPLE SCLEROSIS
     Route: 042
     Dates: start: 20110302
  2. TYSABRI [Suspect]
     Route: 042
     Dates: start: 20070619, end: 20081022
  3. TYSABRI [Suspect]
     Route: 042
     Dates: start: 20090204, end: 20100709

REACTIONS (1)
  - URINARY TRACT INFECTION [None]
